FAERS Safety Report 8344380 (Version 4)
Quarter: 2012Q4

REPORT INFORMATION
  Report Type: Report from Study
  Country: FR (occurrence: FR)
  Receive Date: 20120119
  Receipt Date: 20120829
  Transmission Date: 20130627
  Serious: Yes (Hospitalization)
  Sender: FDA-Public Use
  Company Number: PHHO2012FR000610

PATIENT
  Age: 52 Year
  Sex: Female
  Weight: 58 kg

DRUGS (3)
  1. LETROZOLE [Suspect]
     Indication: BREAST CANCER
     Dosage: 2.5 mg, QD
     Route: 048
     Dates: start: 20110817, end: 20120103
  2. BONIVA [Concomitant]
     Indication: OSTEOPOROSIS
     Dosage: UNK
     Route: 048
     Dates: start: 20110817
  3. VITAMIN D [Concomitant]
     Indication: OSTEOPOROSIS
     Dosage: UNK
     Route: 048
     Dates: start: 20110817

REACTIONS (3)
  - Peripheral arterial occlusive disease [Recovered/Resolved]
  - Diplopia [Recovered/Resolved]
  - Paraesthesia [Recovered/Resolved]
